FAERS Safety Report 14297638 (Version 2)
Quarter: 2019Q3

REPORT INFORMATION
  Report Type: Report from Study
  Country: FR (occurrence: FR)
  Receive Date: 20171218
  Receipt Date: 20190712
  Transmission Date: 20191004
  Serious: Yes (Other)
  Sender: FDA-Public Use
  Company Number: FR-ASTRAZENECA-2017SF13185

PATIENT
  Age: 25310 Day
  Sex: Male
  Weight: 83 kg

DRUGS (5)
  1. MEDI4736 (DURVALUMAB) [Suspect]
     Active Substance: DURVALUMAB
     Indication: GLIOBLASTOMA
     Route: 042
     Dates: start: 20171006
  2. PLAVIX [Concomitant]
     Active Substance: CLOPIDOGREL BISULFATE
     Dosage: 1 DOSAGE PER DAY
     Route: 048
     Dates: start: 1997
  3. MEDI4736 (DURVALUMAB) [Suspect]
     Active Substance: DURVALUMAB
     Indication: GLIOBLASTOMA
     Route: 042
     Dates: start: 20171107
  4. COAPROVEL [Concomitant]
     Active Substance: HYDROCHLOROTHIAZIDE\IRBESARTAN
     Dosage: 300 MG/12,5 MG, ONCE A DAILY
     Route: 048
     Dates: start: 2008
  5. MEDI4736 (DURVALUMAB) [Suspect]
     Active Substance: DURVALUMAB
     Indication: GLIOBLASTOMA
     Route: 042
     Dates: start: 20170908

REACTIONS (1)
  - Optic ischaemic neuropathy [Recovered/Resolved]

NARRATIVE: CASE EVENT DATE: 20171010
